FAERS Safety Report 6738471-8 (Version None)
Quarter: 2010Q2

REPORT INFORMATION
  Report Type: 
  Country: None (occurrence: None)
  Receive Date: 20100524
  Receipt Date: 20100512
  Transmission Date: 20101027
  Serious: Yes (Hospitalization, Other)
  Sender: FDA-Public Use
  Company Number: PHHY2010BR30889

PATIENT
  Sex: Female

DRUGS (4)
  1. RASILEZ [Suspect]
     Indication: HYPERTENSION
     Dosage: 300MG, 1 TABLET DAILY
     Route: 048
     Dates: start: 20090101
  2. CIPROFIBRATE [Concomitant]
     Indication: BLOOD TRIGLYCERIDES INCREASED
     Dosage: 100 MG, 1 TABLET DAILY
     Route: 048
  3. ALLOPURINOL [Concomitant]
     Indication: BLOOD URIC ACID ABNORMAL
     Dosage: 100 MG, 1 TABLET DAILY
     Route: 048
  4. LASIX [Concomitant]
     Indication: BLOOD URIC ACID ABNORMAL
     Dosage: 40 MG, 1 TABLET DAILY

REACTIONS (1)
  - JOINT ARTHROPLASTY [None]
